FAERS Safety Report 10274905 (Version 6)
Quarter: 2016Q2

REPORT INFORMATION
  Report Type: Report from Study
  Country: DE (occurrence: DE)
  Receive Date: 20140702
  Receipt Date: 20160527
  Transmission Date: 20160815
  Serious: Yes (Death, Hospitalization, Other)
  Sender: FDA-Public Use
  Company Number: DE-ROCHE-1428602

PATIENT
  Age: 68 Year
  Sex: Female

DRUGS (3)
  1. TOCILIZUMAB [Suspect]
     Active Substance: TOCILIZUMAB
     Route: 042
     Dates: start: 201312
  2. TOCILIZUMAB [Suspect]
     Active Substance: TOCILIZUMAB
     Indication: RHEUMATOID ARTHRITIS
     Route: 042
     Dates: start: 201204, end: 201305
  3. ZOPLICONE [Concomitant]
     Active Substance: ZOPICLONE

REACTIONS (13)
  - Anaphylactic shock [Unknown]
  - Bipolar disorder [Unknown]
  - Suicidal ideation [Fatal]
  - Spinal pain [Recovering/Resolving]
  - Palpitations [Recovering/Resolving]
  - Erythema [Recovering/Resolving]
  - Hyperhidrosis [Not Recovered/Not Resolved]
  - Swelling face [Recovering/Resolving]
  - Multiple injuries [Fatal]
  - Cluster headache [Not Recovered/Not Resolved]
  - Headache [Recovering/Resolving]
  - Hot flush [Recovering/Resolving]
  - Palpitations [Not Recovered/Not Resolved]

NARRATIVE: CASE EVENT DATE: 201208
